FAERS Safety Report 9644461 (Version 2)
Quarter: 2013Q4

REPORT INFORMATION
  Report Type: Spontaneous
  Country: GB (occurrence: GB)
  Receive Date: 20131025
  Receipt Date: 20131108
  Transmission Date: 20140711
  Serious: Yes (Other)
  Sender: FDA-Public Use
  Company Number: GB-JNJFOC-20131010201

PATIENT
  Sex: Female

DRUGS (2)
  1. NICORETTE PATCH [Suspect]
     Route: 062
  2. NICORETTE PATCH [Suspect]
     Indication: EX-TOBACCO USER
     Route: 062

REACTIONS (8)
  - Incorrect drug administration duration [Unknown]
  - Local swelling [Recovered/Resolved]
  - Blister [Recovered/Resolved]
  - Application site exfoliation [Recovered/Resolved]
  - Scar [Not Recovered/Not Resolved]
  - Depression [Not Recovered/Not Resolved]
  - Erythema [Recovered/Resolved]
  - Application site erythema [Recovered/Resolved]
